FAERS Safety Report 15635655 (Version 1)
Quarter: 2018Q4

REPORT INFORMATION
  Report Type: Report from Study
  Country: NO (occurrence: NO)
  Receive Date: 20181120
  Receipt Date: 20181120
  Transmission Date: 20190205
  Serious: Yes (Hospitalization)
  Sender: FDA-Public Use
  Company Number: NO-TEVA-2018-NO-977265

PATIENT
  Age: 18 Year
  Sex: Male

DRUGS (8)
  1. ETOPOSIDE. [Suspect]
     Active Substance: ETOPOSIDE
     Indication: TESTIS CANCER
     Route: 065
  2. CISPLATIN. [Suspect]
     Active Substance: CISPLATIN
     Indication: TESTIS CANCER
     Route: 065
  3. IMATINIB. [Suspect]
     Active Substance: IMATINIB MESYLATE
     Indication: PNEUMONITIS
     Dosage: DISSOLVED IN WATER AND ADMINISTERED VIA A NASOGASTRIC FEEDING TUBE
     Route: 065
  4. IFOSFAMIDE. [Suspect]
     Active Substance: IFOSFAMIDE
     Indication: TESTIS CANCER
     Route: 065
  5. PREDNISOLONE. [Concomitant]
     Active Substance: PREDNISOLONE
     Indication: PNEUMONITIS
     Route: 065
  6. BLEOMYCIN [Suspect]
     Active Substance: BLEOMYCIN SULFATE
     Indication: TESTIS CANCER
     Route: 065
  7. PACLITAXEL. [Suspect]
     Active Substance: PACLITAXEL
     Indication: TESTIS CANCER
     Route: 065
  8. CARBOPLATIN. [Suspect]
     Active Substance: CARBOPLATIN
     Indication: TESTIS CANCER
     Route: 065

REACTIONS (2)
  - Pneumonitis [Recovering/Resolving]
  - Neutropenia [Recovered/Resolved]
